FAERS Safety Report 4332726-2 (Version None)
Quarter: 2004Q1

REPORT INFORMATION
  Report Type: 
  Country: None (occurrence: None)
  Receive Date: 20040330
  Receipt Date: 20040316
  Transmission Date: 20041129
  Serious: Yes (Other)
  Sender: FDA-Public Use
  Company Number: US-JNJFOC-20040103393

PATIENT
  Age: 74 Year
  Sex: Male
  Weight: 79.7424 kg

DRUGS (15)
  1. REMICADE [Suspect]
     Indication: RHEUMATOID ARTHRITIS
     Dosage: 3 MG/KG, INTRAVENOUS
     Route: 042
     Dates: start: 20031002
  2. REMICADE [Suspect]
     Indication: RHEUMATOID ARTHRITIS
     Dosage: 3 MG/KG, INTRAVENOUS
     Route: 042
     Dates: start: 20031016
  3. REMICADE [Suspect]
     Indication: RHEUMATOID ARTHRITIS
     Dosage: 3 MG/KG, INTRAVENOUS
     Route: 042
     Dates: start: 20031113
  4. REMICADE [Suspect]
     Indication: RHEUMATOID ARTHRITIS
     Dosage: 3 MG/KG, INTRAVENOUS
     Route: 042
     Dates: start: 20040108
  5. PREDNISONE [Concomitant]
  6. VASOTEC [Concomitant]
  7. INSULIN [Concomitant]
  8. NEXIUM [Concomitant]
  9. METHOTREXATE [Concomitant]
  10. FOLIC ACID [Concomitant]
  11. MVI (MULTIVITAMINS) [Concomitant]
  12. PRAVACHOL [Concomitant]
  13. ACETYLSALICYLIC ACID SRT [Concomitant]
  14. ACETAMINOPHEN [Concomitant]
  15. ALLEGRA [Concomitant]

REACTIONS (10)
  - ANGINA PECTORIS [None]
  - DYSPNOEA [None]
  - ERYTHEMA [None]
  - FEELING COLD [None]
  - HYPOXIA [None]
  - INFUSION RELATED REACTION [None]
  - PARAESTHESIA [None]
  - RESPIRATORY RATE INCREASED [None]
  - SWELLING FACE [None]
  - TACHYCARDIA [None]
